FAERS Safety Report 9085937 (Version 1)
Quarter: 2013Q1

REPORT INFORMATION
  Report Type: Report from Study
  Country: US (occurrence: US)
  Receive Date: 20130131
  Receipt Date: 20130131
  Transmission Date: 20140127
  Serious: No
  Sender: FDA-Public Use
  Company Number: US-ABBOTT-12P-163-0995841-00

PATIENT
  Age: 37 Year
  Sex: Male

DRUGS (6)
  1. HUMIRA [Suspect]
     Indication: ARTHRITIS ENTEROPATHIC
     Dates: start: 20120904
  2. HUMIRA [Suspect]
     Indication: ARTHRITIS ENTEROPATHIC
  3. CONCERTA [Concomitant]
     Indication: PRODUCT USED FOR UNKNOWN INDICATION
     Dosage: 36MG DAILY
  4. PAXIL [Concomitant]
     Indication: ANXIETY
     Dosage: 40MG DAILY
  5. ASACOL [Concomitant]
     Indication: CROHN^S DISEASE
     Dosage: 9 PILLS DAILY
  6. ZYRTEC [Concomitant]
     Indication: PRODUCT USED FOR UNKNOWN INDICATION
     Dosage: DAILY

REACTIONS (3)
  - Cough [Recovering/Resolving]
  - Pulmonary congestion [Recovering/Resolving]
  - Increased upper airway secretion [Recovering/Resolving]
